FAERS Safety Report 5677020-2 (Version None)
Quarter: 2008Q1

REPORT INFORMATION
  Report Type: 
  Country: None (occurrence: None)
  Receive Date: 20080324
  Receipt Date: 20080312
  Transmission Date: 20080703
  Serious: Yes (Hospitalization)
  Sender: FDA-Public Use
  Company Number: DE-GENENTECH-248993

PATIENT
  Sex: Female

DRUGS (1)
  1. LUCENTIS [Suspect]
     Indication: MACULAR DEGENERATION
     Dosage: 1 DF, UNK
     Dates: start: 20070815

REACTIONS (3)
  - DYSPEPSIA [None]
  - DYSPNOEA [None]
  - PLEURAL EFFUSION [None]
